FAERS Safety Report 8363399-X (Version None)
Quarter: 2012Q2

REPORT INFORMATION
  Report Type: 
  Country: None (occurrence: None)
  Receive Date: 20120516
  Receipt Date: 20111228
  Transmission Date: 20120825
  Serious: No
  Sender: FDA-Public Use
  Company Number: US-ALEXION-A201101940

PATIENT
  Sex: Female

DRUGS (15)
  1. PLAVIX [Concomitant]
     Dosage: 75 MG, UNK
  2. ASCORBIC ACID [Concomitant]
     Dosage: 1000, UNK
  3. ZETIA [Concomitant]
     Dosage: 10 MG, UNK
  4. DILTIAZ ER [Concomitant]
     Dosage: 240/24, UNK
  5. HYDROCHLOROTHIAZIDE [Concomitant]
     Dosage: 200 MG, UNK
  6. VITAMIN E [Concomitant]
     Dosage: 400 IU, UNK
  7. ADVAIR DISKUS 100/50 [Concomitant]
  8. ISOSORBID MONONITRATE [Concomitant]
     Dosage: 60 MG, UNK
  9. SOLIRIS [Suspect]
     Indication: PAROXYSMAL NOCTURNAL HAEMOGLOBINURIA
     Dosage: 600 MG, QW
     Route: 042
     Dates: start: 20111221
  10. FUROSEMIDE [Concomitant]
     Dosage: 20 MG, UNK
  11. LEVOTHYROXIN KSA [Concomitant]
     Dosage: 75 MG, UNK
  12. NEXIUM [Concomitant]
     Dosage: 40 MG, UNK
  13. ASPIRIN [Concomitant]
     Dosage: 81 MG, UNK
  14. SIMVASTATIN [Concomitant]
     Dosage: 80 MG, UNK
  15. VITAMIN D [Concomitant]
     Dosage: 2000 IU, UNK

REACTIONS (2)
  - NASAL CONGESTION [None]
  - PAIN [None]
